FAERS Safety Report 7701644-1 (Version None)
Quarter: 2011Q3

REPORT INFORMATION
  Report Type: 
  Country: None (occurrence: None)
  Receive Date: 20110822
  Receipt Date: 20110815
  Transmission Date: 20111222
  Serious: Yes (Hospitalization, Other)
  Sender: FDA-Public Use
  Company Number: US-BAYER-201030415NA

PATIENT
  Age: 30 Year
  Sex: Female
  Weight: 92.971 kg

DRUGS (5)
  1. MULTI-VITAMIN [Concomitant]
  2. ZOLOFT [Concomitant]
  3. ZANTAC [Concomitant]
  4. YASMIN [Suspect]
     Indication: ORAL CONTRACEPTION
     Route: 048
     Dates: start: 20010101
  5. PROTONIX [Concomitant]
     Dosage: 40 MG, UNK
     Dates: start: 20020731

REACTIONS (4)
  - BILIARY DYSKINESIA [None]
  - CHOLECYSTITIS CHRONIC [None]
  - GALLBLADDER INJURY [None]
  - DYSPEPSIA [None]
